FAERS Safety Report 8777984 (Version 1)
Quarter: 2012Q4

REPORT INFORMATION
  Report Type: 
  Country: US (occurrence: US)
  Receive Date: 20120911
  Receipt Date: 20120911
  Transmission Date: 20130627
  Serious: No
  Sender: FDA-Public Use
  Company Number: US-PFIZER INC-2012221408

PATIENT
  Age: 47 Year
  Sex: Female
  Weight: 91 kg

DRUGS (4)
  1. FLECTOR [Suspect]
     Indication: JOINT INJURY
     Dosage: UNK
     Dates: start: 20120906, end: 20120907
  2. IBUPROFEN [Concomitant]
     Dosage: 600 mg, 2x/day
  3. WELLBUTRIN XL [Concomitant]
     Dosage: 300 mg, 1x/day
  4. HYDROXYZINE [Concomitant]
     Dosage: 50 mg, 2x/day

REACTIONS (1)
  - Dyspnoea [Recovering/Resolving]
